FAERS Safety Report 26137251 (Version 1)
Quarter: 2025Q4

REPORT INFORMATION
  Report Type: Other
  Country: US (occurrence: US)
  Receive Date: 20251209
  Receipt Date: 20251209
  Transmission Date: 20260118
  Serious: Yes (Hospitalization, Other)
  Sender: HLS THERAPEUTICS
  Company Number: US-HLS-202500420

PATIENT
  Age: 42 Year
  Sex: Male

DRUGS (1)
  1. CLOZAPINE [Suspect]
     Active Substance: CLOZAPINE
     Indication: Schizoaffective disorder bipolar type
     Route: 048

REACTIONS (7)
  - Product dose omission issue [Unknown]
  - Skin laceration [Unknown]
  - Agitation [Unknown]
  - Cholinergic rebound syndrome [Unknown]
  - Hallucination [Unknown]
  - Paranoia [Unknown]
  - Serotonin syndrome [Unknown]
